FAERS Safety Report 7782875-1 (Version None)
Quarter: 2011Q3

REPORT INFORMATION
  Report Type: 
  Country: None (occurrence: None)
  Receive Date: 20110928
  Receipt Date: 20110920
  Transmission Date: 20111222
  Serious: Yes (Disabling)
  Sender: FDA-Public Use
  Company Number: JP-ASTELLAS-2011JP004359

PATIENT
  Sex: Male
  Weight: 90 kg

DRUGS (11)
  1. PROGRAF [Suspect]
     Indication: PROPHYLAXIS AGAINST GRAFT VERSUS HOST DISEASE
     Dosage: UNK
     Route: 041
     Dates: start: 20101111
  2. METHOTREXATE [Concomitant]
     Indication: PROPHYLAXIS AGAINST GRAFT VERSUS HOST DISEASE
     Dosage: 15 MG, UID/QD
     Route: 041
     Dates: start: 20101113, end: 20101113
  3. ANTI-THYMOCYTE GLOBULIN NOS [Concomitant]
     Route: 065
  4. SOLU-MEDROL [Suspect]
     Indication: PROPHYLAXIS AGAINST GRAFT VERSUS HOST DISEASE
     Dosage: 80 MG, UID/QD
     Route: 041
     Dates: start: 20101111
  5. ZETBULIN [Suspect]
     Indication: PROPHYLAXIS AGAINST GRAFT VERSUS HOST DISEASE
     Dosage: 180 MG, UID/QD
     Route: 041
     Dates: start: 20101111, end: 20101111
  6. METHOTREXATE [Concomitant]
     Dosage: 10 MG, UID/QD
     Route: 041
     Dates: start: 20101115, end: 20101115
  7. IDARUBICIN HCL [Concomitant]
     Route: 065
  8. CYTARABINE [Concomitant]
     Route: 065
  9. GRAN [Concomitant]
     Indication: INFECTION PROPHYLAXIS
     Dosage: 75 UG, UID/QD
     Route: 058
     Dates: start: 20101117, end: 20101126
  10. CYCLOPHOSPHAMIDE [Concomitant]
     Indication: ACUTE MYELOID LEUKAEMIA
     Dosage: 4500 MG, UID/QD
     Route: 041
     Dates: start: 20101106, end: 20101107
  11. METHOTREXATE [Concomitant]
     Dosage: 10 MG, UID/QD
     Route: 041
     Dates: start: 20101118, end: 20101118

REACTIONS (2)
  - HUMAN HERPESVIRUS 6 INFECTION [None]
  - INAPPROPRIATE ANTIDIURETIC HORMONE SECRETION [None]
